FAERS Safety Report 25649790 (Version 2)
Quarter: 2025Q3

REPORT INFORMATION
  Report Type: Spontaneous
  Country: JP (occurrence: JP)
  Receive Date: 20250806
  Receipt Date: 20250813
  Transmission Date: 20251020
  Serious: No
  Sender: ALEXION PHARMACEUTICALS
  Company Number: JP-KYOWAKIRIN-2025KK015083

PATIENT
  Age: 22 Year
  Sex: Female

DRUGS (10)
  1. SAXAGLIPTIN [Suspect]
     Active Substance: SAXAGLIPTIN
     Indication: Suicide attempt
  2. TOFOGLIFLOZIN [Concomitant]
     Active Substance: TOFOGLIFLOZIN
     Indication: Suicide attempt
  3. TOFOGLIFLOZIN [Concomitant]
     Active Substance: TOFOGLIFLOZIN
  4. GLIMEPIRIDE [Concomitant]
     Active Substance: GLIMEPIRIDE
     Indication: Suicide attempt
  5. LURASIDONE HYDROCHLORIDE [Concomitant]
     Active Substance: LURASIDONE HYDROCHLORIDE
     Indication: Suicide attempt
  6. ZOLPIDEM TARTRATE [Concomitant]
     Active Substance: ZOLPIDEM TARTRATE
     Indication: Suicide attempt
  7. LEVOMEPROMAZINE MALEATE [Concomitant]
     Active Substance: LEVOMEPROMAZINE MALEATE
     Indication: Suicide attempt
  8. BROTIZOLAM [Concomitant]
     Active Substance: BROTIZOLAM
     Indication: Suicide attempt
  9. CLONAZEPAM [Concomitant]
     Active Substance: CLONAZEPAM
     Indication: Suicide attempt
  10. VALPROATE SODIUM [Concomitant]
     Active Substance: VALPROATE SODIUM
     Indication: Suicide attempt

REACTIONS (1)
  - No adverse event [Unknown]
